FAERS Safety Report 5154621-1 (Version None)
Quarter: 2006Q4

REPORT INFORMATION
  Report Type: 
  Country: None (occurrence: None)
  Receive Date: 20061113
  Receipt Date: 20061031
  Transmission Date: 20070319
  Serious: Yes (Life-Threatening, Hospitalization)
  Sender: FDA-Public Use
  Company Number: T200601269

PATIENT
  Age: 3 Year
  Sex: Female

DRUGS (1)
  1. METHADOSE [Suspect]

REACTIONS (9)
  - ACCIDENTAL EXPOSURE [None]
  - ACUTE MYOCARDIAL INFARCTION [None]
  - BRADYPNOEA [None]
  - BRAIN OEDEMA [None]
  - CARDIOGENIC SHOCK [None]
  - COMA [None]
  - HYPERGLYCAEMIA [None]
  - HYPOXIA [None]
  - PNEUMONIA ASPIRATION [None]
